FAERS Safety Report 15584490 (Version 3)
Quarter: 2018Q4

REPORT INFORMATION
  Report Type: Report from Study
  Country: US (occurrence: US)
  Receive Date: 20181105
  Receipt Date: 20181119
  Transmission Date: 20190205
  Serious: No
  Sender: FDA-Public Use
  Company Number: US-SA-2018SA302167

PATIENT
  Age: 65 Year
  Sex: Male

DRUGS (3)
  1. REPATHA [Concomitant]
     Active Substance: EVOLOCUMAB
     Dosage: UNK
  2. ALIROCUMAB [Suspect]
     Active Substance: ALIROCUMAB
     Dosage: 75 MG, QOW
     Route: 058
     Dates: start: 20181030
  3. ALIROCUMAB [Suspect]
     Active Substance: ALIROCUMAB
     Indication: BLOOD CHOLESTEROL INCREASED
     Dosage: 75 MG, QOW
     Route: 058
     Dates: start: 20180904

REACTIONS (3)
  - Underdose [Unknown]
  - Product use issue [Unknown]
  - Device issue [Unknown]

NARRATIVE: CASE EVENT DATE: 20181030
